FAERS Safety Report 4414596-7 (Version None)
Quarter: 2004Q3

REPORT INFORMATION
  Report Type: 
  Country: None (occurrence: None)
  Receive Date: 20040729
  Receipt Date: 20040720
  Transmission Date: 20050211
  Serious: Yes (Hospitalization)
  Sender: FDA-Public Use
  Company Number: RS004593-AUS

PATIENT
  Age: 63 Year
  Sex: Male

DRUGS (5)
  1. PARIET (RABEPRAZOLE) (RABEPRAZOLE SODIUM) [Suspect]
     Indication: DYSGEUSIA
     Dosage: ORAL
     Route: 048
     Dates: start: 20031210
  2. NEXIUM [Concomitant]
  3. AVAPRO [Concomitant]
  4. NORVASC [Concomitant]
  5. LIPITOR [Concomitant]

REACTIONS (5)
  - DYSPEPSIA [None]
  - FATIGUE [None]
  - HAEMATURIA [None]
  - NEPHRITIS INTERSTITIAL [None]
  - RENAL FAILURE ACUTE [None]
